FAERS Safety Report 17228770 (Version 2)
Quarter: 2020Q1

REPORT INFORMATION
  Report Type: Spontaneous
  Country: US (occurrence: US)
  Receive Date: 20200103
  Receipt Date: 20200106
  Transmission Date: 20200409
  Serious: Yes (Death, Other)
  Sender: FDA-Public Use
  Company Number: US-PFIZER INC-2019558012

PATIENT
  Age: 54 Year
  Sex: Female

DRUGS (5)
  1. SODIUM THIOSULFATE [Concomitant]
     Active Substance: SODIUM THIOSULFATE
     Indication: NEPHROPATHY TOXIC
     Dosage: UNK
     Dates: start: 198612, end: 198706
  2. ETOPOSIDE. [Concomitant]
     Active Substance: ETOPOSIDE
     Indication: OVARIAN CANCER
     Dosage: UNK
     Dates: start: 198612, end: 198706
  3. ETOPOSIDE. [Concomitant]
     Active Substance: ETOPOSIDE
     Dosage: 50 MG/M2, CYCLIC
     Route: 033
  4. CARBOPLATIN. [Suspect]
     Active Substance: CARBOPLATIN
     Dosage: 300 MG/M2, CYCLIC (4 COURSES OF INTRAPERITONEAL THERAPY, 300 MG/M^2 FOR THE NEXT THREE CYCLES)
     Route: 033
  5. CARBOPLATIN. [Suspect]
     Active Substance: CARBOPLATIN
     Indication: OVARIAN CANCER
     Dosage: 200 MG/M2, CYCLIC (SIX CYCLES OF INTRAPERITONEAL (IP) THERAPY)
     Route: 033
     Dates: start: 198612, end: 198706

REACTIONS (2)
  - Tubulointerstitial nephritis [Recovering/Resolving]
  - Acute kidney injury [Recovering/Resolving]
